FAERS Safety Report 24259647 (Version 1)
Quarter: 2024Q3

REPORT INFORMATION
  Report Type: Spontaneous
  Country: US (occurrence: None)
  Receive Date: 20240827
  Receipt Date: 20240827
  Transmission Date: 20241017
  Serious: Yes (unspecified)
  Sender: Public
  Company Number: None

PATIENT
  Age: 4 Year
  Sex: Female
  Weight: 57 kg

DRUGS (2)
  1. LATUDA [Suspect]
     Active Substance: LURASIDONE HYDROCHLORIDE
     Indication: Bipolar disorder
     Dosage: FREQUENCY : TWICE A DAY;?
     Route: 048
     Dates: start: 20230501, end: 20240201
  2. THORAZINE [Suspect]
     Active Substance: CHLORPROMAZINE

REACTIONS (3)
  - Breast tenderness [None]
  - Breast discharge [None]
  - Blood prolactin decreased [None]

NARRATIVE: CASE EVENT DATE: 20240117
